FAERS Safety Report 16834721 (Version 3)
Quarter: 2019Q4

REPORT INFORMATION
  Report Type: Spontaneous
  Country: US (occurrence: US)
  Receive Date: 20190920
  Receipt Date: 20191119
  Transmission Date: 20200122
  Serious: No
  Sender: FDA-Public Use
  Company Number: US-PFIZER INC-2019403254

PATIENT
  Age: 85 Year
  Sex: Male
  Weight: 79.38 kg

DRUGS (4)
  1. TOVIAZ [Suspect]
     Active Substance: FESOTERODINE FUMARATE
     Indication: BLADDER SPASM
     Dosage: 8 MG, UNK
  2. TOVIAZ [Suspect]
     Active Substance: FESOTERODINE FUMARATE
     Indication: HYPERTONIC BLADDER
     Dosage: 4 MG, 1X/DAY(1 TABLET BY MOUTH EVERYDAY AT 5PM)
     Route: 048
  3. TOVIAZ [Suspect]
     Active Substance: FESOTERODINE FUMARATE
     Indication: BLADDER DISORDER
     Dosage: 8 MG, UNK
     Dates: start: 20190729
  4. TOVIAZ [Suspect]
     Active Substance: FESOTERODINE FUMARATE
     Indication: URINARY INCONTINENCE

REACTIONS (3)
  - Drug ineffective [Unknown]
  - Catheter site extravasation [Recovering/Resolving]
  - Catheter site pain [Recovering/Resolving]

NARRATIVE: CASE EVENT DATE: 20190729
